FAERS Safety Report 21453477 (Version 1)
Quarter: 2022Q4

REPORT INFORMATION
  Report Type: Spontaneous
  Country: US (occurrence: US)
  Receive Date: 20221013
  Receipt Date: 20221013
  Transmission Date: 20230113
  Serious: No
  Sender: FDA-Public Use
  Company Number: USA--2022-US-000805

PATIENT
  Age: 82 Year
  Sex: Female

DRUGS (2)
  1. LATANOPROST [Suspect]
     Active Substance: LATANOPROST
  2. Bayer Low Dose Aspirin [Concomitant]

REACTIONS (1)
  - Headache [Recovered/Resolved]
